FAERS Safety Report 6701851-0 (Version None)
Quarter: 2010Q2

REPORT INFORMATION
  Report Type: 
  Country: None (occurrence: None)
  Receive Date: 20100427
  Receipt Date: 20100421
  Transmission Date: 20101027
  Serious: Yes (Death)
  Sender: FDA-Public Use
  Company Number: SPV1-2010-00773

PATIENT
  Sex: Female
  Weight: 23.1 kg

DRUGS (1)
  1. FOSRENOL [Suspect]

REACTIONS (1)
  - MYOCARDIAL INFARCTION [None]
